FAERS Safety Report 16662938 (Version 1)
Quarter: 2019Q3

REPORT INFORMATION
  Report Type: Report from Study
  Country: US (occurrence: US)
  Receive Date: 20190802
  Receipt Date: 20190802
  Transmission Date: 20191004
  Serious: No
  Sender: FDA-Public Use
  Company Number: US-EXELIXIS-CABO-19020456

PATIENT
  Age: 47 Year
  Sex: Female

DRUGS (2)
  1. CABOMETYX [Suspect]
     Active Substance: CABOZANTINIB S-MALATE
     Indication: RECTAL CANCER
     Dosage: 40 MG, QD (IN THE MORNING WITHOUT FOOD)
     Dates: start: 20190407, end: 201904
  2. CABOMETYX [Suspect]
     Active Substance: CABOZANTINIB S-MALATE
     Indication: METASTASES TO LUNG
     Dosage: 40 MG, QD (IN THE MORNING WITHOUT FOOD)
     Dates: start: 201904

REACTIONS (10)
  - Abdominal distension [Unknown]
  - Off label use [Unknown]
  - Fatigue [Not Recovered/Not Resolved]
  - Headache [Unknown]
  - Frequent bowel movements [Unknown]
  - Decreased appetite [Not Recovered/Not Resolved]
  - Memory impairment [Unknown]
  - Flatulence [Unknown]
  - Blood pressure increased [Recovered/Resolved]
  - Pleural disorder [Unknown]

NARRATIVE: CASE EVENT DATE: 201904
